FAERS Safety Report 17342405 (Version 1)
Quarter: 2020Q1

REPORT INFORMATION
  Report Type: Spontaneous
  Country: US (occurrence: US)
  Receive Date: 20200129
  Receipt Date: 20200129
  Transmission Date: 20200409
  Serious: No
  Sender: FDA-Public Use
  Company Number: US-ALLERGAN-1925836US

PATIENT
  Age: 44 Year
  Sex: Female

DRUGS (4)
  1. AIMOVING [Concomitant]
     Indication: MIGRAINE
     Dosage: UNK, EVERY TWO WEEKS
     Route: 065
  2. UNSPECIFIED MEDICATION [Concomitant]
     Active Substance: UNSPECIFIED INGREDIENT
     Indication: MIGRAINE
     Dosage: UNK
     Route: 065
  3. BOTOX [Suspect]
     Active Substance: ONABOTULINUMTOXINA
     Indication: MIGRAINE
     Dosage: UNK UNK, SINGLE
     Dates: start: 20190526, end: 20190526
  4. UNSPECIFIED MEDICATION [Concomitant]
     Active Substance: UNSPECIFIED INGREDIENT
     Indication: DEPRESSION
     Dosage: UNK
     Route: 065

REACTIONS (6)
  - Visual impairment [Not Recovered/Not Resolved]
  - Migraine [Not Recovered/Not Resolved]
  - Facial paresis [Not Recovered/Not Resolved]
  - Injection site pain [Recovered/Resolved]
  - Dry mouth [Not Recovered/Not Resolved]
  - Vision blurred [Not Recovered/Not Resolved]

NARRATIVE: CASE EVENT DATE: 20190526
